FAERS Safety Report 8999525 (Version 1)
Quarter: 2013Q1

REPORT INFORMATION
  Report Type: Report from Study
  Country: US (occurrence: US)
  Receive Date: 20130103
  Receipt Date: 20130103
  Transmission Date: 20140127
  Serious: Yes (Death, Other)
  Sender: FDA-Public Use
  Company Number: US-PFIZER INC-2011079354

PATIENT
  Age: 71 Year
  Sex: Female

DRUGS (23)
  1. GLIBENCLAMIDE [Suspect]
     Indication: TYPE 2 DIABETES MELLITUS
     Dosage: 5 MG, UNK
  2. METFORMIN HYDROCHLORIDE [Suspect]
     Indication: TYPE 2 DIABETES MELLITUS
     Dosage: 1000 MG, UNK
  3. BLINDED THERAPY [Suspect]
     Indication: TYPE 2 DIABETES MELLITUS
     Dosage: UNK
     Dates: start: 20100930
  4. ACETYLSALICYLIC ACID [Concomitant]
  5. EZETIMIBE [Concomitant]
  6. CLONIDINE [Concomitant]
  7. COLACE [Concomitant]
  8. FEXOFENADINE HYDROCHLORIDE [Concomitant]
  9. GLYBURIDE [Concomitant]
  10. IMDUR [Concomitant]
  11. LASIX [Concomitant]
  12. LEVOXYL [Concomitant]
  13. LIPITOR [Concomitant]
  14. LOPRESSOR [Concomitant]
  15. PLAVIX [Concomitant]
  16. POTASSIUM CHLORIDE [Concomitant]
  17. PRILOSEC [Concomitant]
  18. TEMAZEPAM [Concomitant]
  19. TRICOR [Concomitant]
  20. ZANTAC [Concomitant]
  21. ADVAIR DISKUS [Concomitant]
  22. LISINOPRIL [Concomitant]
  23. METFORMIN [Concomitant]

REACTIONS (2)
  - Cardiac failure congestive [Fatal]
  - Hypoglycaemia [Recovered/Resolved]
